FAERS Safety Report 5245567-9 (Version None)
Quarter: 2007Q1

REPORT INFORMATION
  Report Type: 
  Country: None (occurrence: None)
  Receive Date: 20070223
  Receipt Date: 20070213
  Transmission Date: 20070707
  Serious: Yes (Disabling)
  Sender: FDA-Public Use
  Company Number: DE-PFIZER INC-2007002896

PATIENT
  Sex: Male
  Weight: 100 kg

DRUGS (1)
  1. AZULFIDINE RA [Suspect]
     Indication: PSORIATIC ARTHROPATHY
     Dosage: TEXT:1 TABLET; 2 TABLETS-FREQ:BID
     Route: 048
     Dates: start: 20061225, end: 20070105

REACTIONS (3)
  - FACIAL PARESIS [None]
  - ORAL SOFT TISSUE DISORDER [None]
  - PHARYNGOLARYNGEAL PAIN [None]
